FAERS Safety Report 21308170 (Version 1)
Quarter: 2022Q3

REPORT INFORMATION
  Report Type: Spontaneous
  Country: US (occurrence: US)
  Receive Date: 20220908
  Receipt Date: 20220908
  Transmission Date: 20221026
  Serious: Yes (Hospitalization)
  Sender: FDA-Public Use
  Company Number: US-SLATE RUN PHARMACEUTICALS-22US001297

PATIENT

DRUGS (3)
  1. BUPROPION HYDROCHLORIDE [Suspect]
     Active Substance: BUPROPION HYDROCHLORIDE
     Indication: Product used for unknown indication
     Dosage: 8 TO 9 RANDOM COMBINATIONS OF 150 MG AND 300 MG , PRN
     Route: 045
  2. BUPROPION HYDROCHLORIDE [Suspect]
     Active Substance: BUPROPION HYDROCHLORIDE
     Dosage: UNK
  3. BUPROPION HYDROCHLORIDE [Concomitant]
     Active Substance: BUPROPION HYDROCHLORIDE
     Indication: Product used for unknown indication

REACTIONS (6)
  - Hyponatraemia [Recovered/Resolved]
  - Substance-induced psychotic disorder [Unknown]
  - Suicide attempt [Recovered/Resolved]
  - Hallucination, visual [Recovered/Resolved]
  - Drug abuse [Unknown]
  - Intentional overdose [Unknown]
